FAERS Safety Report 25099444 (Version 1)
Quarter: 2025Q1

REPORT INFORMATION
  Report Type: Spontaneous
  Country: IT (occurrence: IT)
  Receive Date: 20250320
  Receipt Date: 20250320
  Transmission Date: 20250409
  Serious: Yes (Hospitalization, Other)
  Sender: MERCK SHARP & DOHME LLC
  Company Number: None

PATIENT
  Age: 81 Year
  Sex: Male

DRUGS (2)
  1. KEYTRUDA [Suspect]
     Active Substance: PEMBROLIZUMAB
     Indication: Renal cell carcinoma stage IV
     Route: 042
     Dates: start: 20220708, end: 20250203
  2. INLYTA [Suspect]
     Active Substance: AXITINIB
     Indication: Renal cancer stage IV
     Dosage: DOSAGE: 5 MG 5 MG X 2 TIMES A DAY
     Dates: start: 20220708, end: 20250203

REACTIONS (5)
  - Peripheral artery thrombosis [Recovered/Resolved with Sequelae]
  - Pyrexia [Recovered/Resolved]
  - Staphylococcal infection [Recovered/Resolved]
  - Skin bacterial infection [Recovering/Resolving]
  - Vascular pseudoaneurysm [Recovering/Resolving]

NARRATIVE: CASE EVENT DATE: 20241212
